FAERS Safety Report 4345102-3 (Version None)
Quarter: 2004Q2

REPORT INFORMATION
  Report Type: 
  Country: None (occurrence: None)
  Receive Date: 20040421
  Receipt Date: 20040421
  Transmission Date: 20050107
  Serious: Yes (Disabling)
  Sender: FDA-Public Use
  Company Number: None

PATIENT
  Age: 50 Year
  Sex: Female
  Weight: 52.1637 kg

DRUGS (1)
  1. SEPTOCAINE / SEPTODONT  4% [Suspect]
     Indication: ARTIFICIAL CROWN PROCEDURE
     Dosage: INJECTION
     Dates: start: 20040331, end: 20040331

REACTIONS (27)
  - BLOOD PRESSURE INCREASED [None]
  - BURNING SENSATION [None]
  - CENTRAL NERVOUS SYSTEM STIMULATION [None]
  - DIZZINESS [None]
  - DRY MOUTH [None]
  - DYSGEUSIA [None]
  - FEELING ABNORMAL [None]
  - FEELING JITTERY [None]
  - GINGIVAL DISORDER [None]
  - GINGIVITIS [None]
  - GLOSSITIS [None]
  - GLOSSODYNIA [None]
  - HEART RATE INCREASED [None]
  - HYPOAESTHESIA [None]
  - HYPOAESTHESIA ORAL [None]
  - LIP DRY [None]
  - MUSCLE TIGHTNESS [None]
  - MYALGIA [None]
  - NERVOUSNESS [None]
  - ORAL PAIN [None]
  - PAIN IN JAW [None]
  - PARAESTHESIA [None]
  - SENSITIVITY OF TEETH [None]
  - SKIN TIGHTNESS [None]
  - THROAT TIGHTNESS [None]
  - TONGUE BLISTERING [None]
  - TREMOR [None]
